FAERS Safety Report 14613250 (Version 1)
Quarter: 2018Q1

REPORT INFORMATION
  Report Type: Spontaneous
  Country: IN (occurrence: IN)
  Receive Date: 20180308
  Receipt Date: 20180308
  Transmission Date: 20180509
  Serious: Yes (Hospitalization)
  Sender: FDA-Public Use
  Company Number: IN-OXFORD PHARMACEUTICALS, LLC-2018OXF00012

PATIENT
  Age: 70 Year
  Sex: Female

DRUGS (2)
  1. AMISULPRIDE [Suspect]
     Active Substance: AMISULPRIDE
     Dosage: 50 MG, 1X/DAY
     Route: 065
  2. SERTRALINE HYDROCHLORIDE. [Suspect]
     Active Substance: SERTRALINE HYDROCHLORIDE
     Dosage: 125 MG, 1X/DAY
     Route: 065

REACTIONS (2)
  - Drug interaction [Recovered/Resolved]
  - Neuroleptic malignant syndrome [Recovered/Resolved]
